FAERS Safety Report 4724836-2 (Version None)
Quarter: 2005Q3

REPORT INFORMATION
  Report Type: 
  Country: None (occurrence: None)
  Receive Date: 20050726
  Receipt Date: 20050511
  Transmission Date: 20060218
  Serious: Yes (Hospitalization)
  Sender: FDA-Public Use
  Company Number: DE-ROCHE-404460

PATIENT
  Age: 79 Year
  Sex: Female
  Weight: 61 kg

DRUGS (5)
  1. IBANDRONIC ACID [Suspect]
     Indication: OSTEOPOROSIS POSTMENOPAUSAL
     Route: 048
     Dates: start: 20041019, end: 20041218
  2. ALENDRONIC ACID [Suspect]
     Indication: OSTEOPOROSIS POSTMENOPAUSAL
     Route: 048
     Dates: start: 20050119
  3. SIMVASTATIN [Concomitant]
     Dates: start: 20020315
  4. ASPIRIN [Concomitant]
     Dates: start: 20020315
  5. CALCIUM GLUCONATE [Concomitant]
     Route: 048
     Dates: start: 20041007

REACTIONS (2)
  - DYSPNOEA [None]
  - TEMPORAL ARTERITIS [None]
